FAERS Safety Report 10240522 (Version 1)
Quarter: 2014Q2

REPORT INFORMATION
  Report Type: Report from Study
  Country: KR (occurrence: KR)
  Receive Date: 20140617
  Receipt Date: 20140617
  Transmission Date: 20141212
  Serious: Yes (Other)
  Sender: FDA-Public Use
  Company Number: KR-ROCHE-1417708

PATIENT
  Sex: 0

DRUGS (1)
  1. BEVACIZUMAB [Suspect]
     Indication: RETINAL DISORDER
     Dosage: 1.25MG/0.05ML
     Route: 050

REACTIONS (3)
  - Retinal disorder [Unknown]
  - Intraocular pressure increased [Recovered/Resolved]
  - Off label use [Unknown]
